FAERS Safety Report 7505286-2 (Version None)
Quarter: 2011Q2

REPORT INFORMATION
  Report Type: 
  Country: None (occurrence: None)
  Receive Date: 20110526
  Receipt Date: 20110512
  Transmission Date: 20111010
  Serious: Yes (Death, Other)
  Sender: FDA-Public Use
  Company Number: GR-JNJFOC-20091201003

PATIENT
  Age: 70 Year
  Sex: Female

DRUGS (7)
  1. LEUSTATIN [Suspect]
     Dosage: 0.12 MG/KG/DAY IN 2-HOUR INFUSION FOR 6 DAYS,4 CYCLES, EVERY 4 WEEKS
     Route: 065
  2. LEUSTATIN [Suspect]
     Indication: SYSTEMIC MASTOCYTOSIS
     Route: 065
  3. INTERFERON ALFA [Suspect]
     Indication: SYSTEMIC MASTOCYTOSIS
     Route: 058
  4. LENOGRASTIM [Suspect]
     Indication: ANAEMIA
     Route: 065
  5. LEUSTATIN [Suspect]
     Route: 065
  6. LEUSTATIN [Suspect]
     Route: 065
  7. EPOETIN ALFA [Suspect]
     Indication: ANAEMIA
     Route: 065

REACTIONS (8)
  - ANAEMIA [None]
  - SYSTEMIC MASTOCYTOSIS [None]
  - DRUG INEFFECTIVE FOR UNAPPROVED INDICATION [None]
  - ACINETOBACTER INFECTION [None]
  - DIARRHOEA [None]
  - WHITE BLOOD CELL COUNT DECREASED [None]
  - OFF LABEL USE [None]
  - NEUTROPHIL COUNT DECREASED [None]
